FAERS Safety Report 14860171 (Version 2)
Quarter: 2018Q3

REPORT INFORMATION
  Report Type: Spontaneous
  Country: US (occurrence: US)
  Receive Date: 20180508
  Receipt Date: 20180720
  Transmission Date: 20181010
  Serious: No
  Sender: FDA-Public Use
  Company Number: US-PFIZER INC-2018182830

PATIENT
  Age: 7 Year
  Sex: Female

DRUGS (1)
  1. QUILLICHEW ER [Suspect]
     Active Substance: METHYLPHENIDATE HYDROCHLORIDE
     Indication: ATTENTION DEFICIT/HYPERACTIVITY DISORDER
     Dosage: 30 MG, 1X/DAY (30MG TABLET BY MOUTH ONCE DAILY)
     Route: 048

REACTIONS (6)
  - Anger [Recovering/Resolving]
  - Educational problem [Recovering/Resolving]
  - Fatigue [Recovering/Resolving]
  - Energy increased [Recovering/Resolving]
  - Emotional disorder [Recovering/Resolving]
  - Drug effect incomplete [Recovering/Resolving]
